FAERS Safety Report 22948646 (Version 2)
Quarter: 2023Q4

REPORT INFORMATION
  Report Type: Spontaneous
  Country: US (occurrence: US)
  Receive Date: 20230915
  Receipt Date: 20231209
  Transmission Date: 20240109
  Serious: No
  Sender: FDA-Public Use
  Company Number: US-SA-SAC20230908001159

PATIENT
  Age: 67 Year
  Sex: Female

DRUGS (1)
  1. DUPIXENT [Suspect]
     Active Substance: DUPILUMAB
     Indication: Dermatitis atopic
     Dosage: 300 MG, QOW
     Route: 058

REACTIONS (7)
  - Nausea [Unknown]
  - Abdominal distension [Unknown]
  - Lacrimation increased [Unknown]
  - Fatigue [Recovered/Resolved]
  - Pruritus [Unknown]
  - Insomnia [Unknown]
  - Dry eye [Recovered/Resolved]
